FAERS Safety Report 8786139 (Version 1)
Quarter: 2012Q4

REPORT INFORMATION
  Report Type: 
  Country: US (occurrence: US)
  Receive Date: 20120914
  Receipt Date: 20120914
  Transmission Date: 20130627
  Serious: No
  Sender: FDA-Public Use
  Company Number: US-VERTEX PHARMACEUTICAL INC.-AE-2012-009465

PATIENT
  Age: 77 None
  Sex: Male
  Weight: 71.36 kg

DRUGS (9)
  1. INCIVEK [Suspect]
     Indication: HEPATITIS C
     Route: 048
     Dates: start: 20120513, end: 20120730
  2. RIBAVIRIN [Concomitant]
     Indication: HEPATITIS C
     Route: 048
     Dates: start: 20120513, end: 20120528
  3. RIBAVIRIN [Concomitant]
     Route: 048
     Dates: start: 20120528, end: 20120611
  4. RIBAVIRIN [Concomitant]
     Route: 048
     Dates: start: 20120620, end: 20120709
  5. RIBAVIRIN [Concomitant]
     Route: 048
     Dates: start: 20120717, end: 20120731
  6. RIBAVIRIN [Concomitant]
     Route: 048
     Dates: start: 20120731
  7. PEGINTERFERON [Concomitant]
     Indication: HEPATITIS C
     Route: 058
     Dates: start: 20120513
  8. VITAMINS [Concomitant]
     Indication: MEDICAL DIET
  9. SYNTHROID [Concomitant]
     Indication: HYPOTHYROIDISM
     Route: 048

REACTIONS (4)
  - Incorrect dose administered [Recovered/Resolved]
  - Rash pruritic [Not Recovered/Not Resolved]
  - Pruritus [Not Recovered/Not Resolved]
  - Anaemia [Not Recovered/Not Resolved]
